FAERS Safety Report 21284120 (Version 2)
Quarter: 2022Q3

REPORT INFORMATION
  Report Type: Spontaneous
  Country: IT (occurrence: IT)
  Receive Date: 20220902
  Receipt Date: 20220906
  Transmission Date: 20221027
  Serious: Yes (Hospitalization, Other)
  Sender: FDA-Public Use
  Company Number: IT-MINISAL02-882108

PATIENT
  Age: 77 Year
  Sex: Male

DRUGS (14)
  1. REPAGLINIDE [Suspect]
     Active Substance: REPAGLINIDE
     Indication: Type 2 diabetes mellitus
     Dosage: NON NOTO NOME COMMERCIALE, DURATA DELL^USO E DOSAGGIO ASSUNTO
     Route: 048
  2. METFORMIN [Suspect]
     Active Substance: METFORMIN HYDROCHLORIDE
     Indication: Type 2 diabetes mellitus
     Dosage: NON NOTO NOME COMMERCIALE, DURATA DELL^USO E DOSAGGIO ASSUNTO
     Route: 048
  3. NEBIVOLOL [Concomitant]
     Active Substance: NEBIVOLOL
     Indication: Hypertension
     Dosage: NON NOTI/ PRECISATI NOME COMMERCIALE, DURATA DELL^USO E DOSAGGIO ASSUNTO, INDICAZIONI
     Route: 048
  4. ANORO ELLIPTA [Concomitant]
     Active Substance: UMECLIDINIUM BROMIDE\VILANTEROL TRIFENATATE
     Indication: Chronic obstructive pulmonary disease
     Dosage: NON NOTI/ PRECISATI  DURATA DELL^USO E DOSAGGIO ASSUNTO
     Route: 065
  5. DUTASTERIDE [Concomitant]
     Active Substance: DUTASTERIDE
     Indication: Product used for unknown indication
     Dosage: NON NOTI/ PRECISATI NOME COMMERCIALE, DURATA DELL^USO E DOSAGGIO ASSUNTO, INDICAZIONI
     Route: 048
  6. ROLUFTA ELLIPTA [Concomitant]
     Indication: Chronic obstructive pulmonary disease
     Dosage: NON NOTI/ PRECISATI DURATA DELL^USO E DOSAGGIO ASSUNTO
     Route: 065
  7. TAMSULOSIN HYDROCHLORIDE [Concomitant]
     Active Substance: TAMSULOSIN HYDROCHLORIDE
     Indication: Product used for unknown indication
     Dosage: UNK
     Route: 048
  8. LERCANIDIPINE [Concomitant]
     Active Substance: LERCANIDIPINE
     Indication: Hypertension
     Dosage: UNK
     Route: 048
  9. ASPIRIN [Concomitant]
     Active Substance: ASPIRIN
     Indication: Thrombosis prophylaxis
     Dosage: 100 MILLIGRAM, ONCE A DAY
     Route: 048
  10. ETORICOXIB [Concomitant]
     Active Substance: ETORICOXIB
     Indication: Product used for unknown indication
     Dosage: NON NOTO NOME COMMERCIALE, DURATA DELL^USO E DOSAGGIO ASSUNTO
     Route: 048
  11. ALLOPURINOL [Concomitant]
     Active Substance: ALLOPURINOL
     Indication: Product used for unknown indication
     Dosage: NON NOTI/ PRECISATI NOME COMMERCIALE, DURATA DELL^USO E DOSAGGIO ASSUNTO, INDICAZIONI
     Route: 048
  12. VALSARTAN [Concomitant]
     Active Substance: VALSARTAN
     Indication: Hypertension
     Dosage: NON NOTI/ PRECISATI NOME COMMERCIALE, DURATA DELL^USO E DOSAGGIO ASSUNTO, INDICAZIONI
     Route: 048
  13. FERROUS SULFATE [Concomitant]
     Active Substance: FERROUS SULFATE
     Indication: Product used for unknown indication
     Dosage: UNK
     Route: 048
  14. TIMOLOL MALEATE [Concomitant]
     Active Substance: TIMOLOL MALEATE
     Indication: Product used for unknown indication
     Dosage: UNK
     Route: 057

REACTIONS (4)
  - Acute kidney injury [Recovering/Resolving]
  - Lactic acidosis [Recovering/Resolving]
  - Sopor [Not Recovered/Not Resolved]
  - Hypoglycaemia [Recovering/Resolving]

NARRATIVE: CASE EVENT DATE: 20220623
